FAERS Safety Report 17724928 (Version 2)
Quarter: 2020Q2

REPORT INFORMATION
  Report Type: Spontaneous
  Country: US (occurrence: US)
  Receive Date: 20200429
  Receipt Date: 20200430
  Transmission Date: 20200714
  Serious: Yes (Other)
  Sender: FDA-Public Use
  Company Number: US-PFIZER INC-2020168836

PATIENT
  Sex: Female

DRUGS (1)
  1. CHANTIX [Suspect]
     Active Substance: VARENICLINE TARTRATE
     Dosage: UNK, 1X/DAY, [ONE A DAY IN THE MORNING]
     Dates: start: 20200422

REACTIONS (2)
  - Limb injury [Unknown]
  - Intestinal obstruction [Unknown]
